FAERS Safety Report 13040374 (Version 9)
Quarter: 2017Q4

REPORT INFORMATION
  Report Type: Report from Study
  Country: US (occurrence: US)
  Receive Date: 20161219
  Receipt Date: 20171009
  Transmission Date: 20180320
  Serious: Yes (Hospitalization)
  Sender: FDA-Public Use
  Company Number: US-CELGENEUS-USA-2016124824

PATIENT
  Age: 57 Year
  Sex: Female

DRUGS (38)
  1. MPDL3280A (ATEZOLIZUMAB) [Suspect]
     Active Substance: ATEZOLIZUMAB
     Route: 041
     Dates: start: 20161130
  2. AMLODIPINE BESILATE [Concomitant]
     Active Substance: AMLODIPINE BESYLATE
     Route: 065
     Dates: start: 20161011
  3. SENNA [Concomitant]
     Active Substance: SENNA LEAF\SENNOSIDES\SENNOSIDES A AND B
     Indication: PRODUCT USED FOR UNKNOWN INDICATION
     Route: 065
     Dates: start: 20161220
  4. ONDANSETRON [Concomitant]
     Active Substance: ONDANSETRON
     Dosage: 4MG
     Route: 065
     Dates: start: 20161102
  5. FAMOTIDINE. [Concomitant]
     Active Substance: FAMOTIDINE
     Route: 065
     Dates: start: 20161116, end: 20161130
  6. LORAZEPAM. [Concomitant]
     Active Substance: LORAZEPAM
     Dosage: .5 MILLIGRAM
     Route: 065
     Dates: start: 20161019, end: 20170222
  7. ABRAXANE [Suspect]
     Active Substance: PACLITAXEL
     Dosage: 100MG/M2
     Route: 041
     Dates: start: 20161207, end: 20161214
  8. MACROGOL 3350 [Concomitant]
     Active Substance: POLYETHYLENE GLYCOL 3350
     Indication: CONSTIPATION
     Dosage: 17 GRAM
     Route: 065
     Dates: start: 20160920, end: 20170222
  9. EVENING PRIMROSE OIL [Concomitant]
     Active Substance: EVENING PRIMROSE OIL
     Indication: HOT FLUSH
     Route: 065
     Dates: start: 20151020, end: 20170222
  10. AMLODIPINE BESILATE [Concomitant]
     Active Substance: AMLODIPINE BESYLATE
     Indication: HYPERTENSION
     Route: 065
     Dates: start: 20160808
  11. CITALOPRAM HYDROBROMIDE. [Concomitant]
     Active Substance: CITALOPRAM HYDROBROMIDE
     Dosage: 40 MILLIGRAM
     Route: 065
     Dates: start: 20161019, end: 20170222
  12. MAGIC SWIZZLE [Concomitant]
     Indication: PRODUCT USED FOR UNKNOWN INDICATION
     Route: 065
     Dates: start: 20161011
  13. OMEPRAZOLE. [Concomitant]
     Active Substance: OMEPRAZOLE
     Indication: PRODUCT USED FOR UNKNOWN INDICATION
     Dosage: 40 MILLIGRAM
     Route: 065
     Dates: start: 20161220
  14. GRANISETRON HYDROCHLORIDE. [Concomitant]
     Active Substance: GRANISETRON HYDROCHLORIDE
     Indication: PREMEDICATION
     Route: 065
     Dates: start: 20161102, end: 20170130
  15. CIPRO [Concomitant]
     Active Substance: CIPROFLOXACIN HYDROCHLORIDE
     Indication: URINARY TRACT INFECTION
     Route: 065
     Dates: start: 20161216, end: 20161225
  16. CYCLOBENZAPRINE HYDROCHLORIDE. [Concomitant]
     Active Substance: CYCLOBENZAPRINE HYDROCHLORIDE
     Indication: BACK PAIN
     Route: 065
     Dates: start: 20161003, end: 20170222
  17. MORPHINE SULFATE. [Concomitant]
     Active Substance: MORPHINE SULFATE
     Indication: BACK PAIN
     Dosage: 15 MILLIGRAM
     Route: 065
     Dates: start: 20161011, end: 20170222
  18. OXYCODONE [Concomitant]
     Active Substance: OXYCODONE
     Dosage: 156 MILLIGRAM
     Route: 065
     Dates: start: 20161220
  19. FAMOTIDINE. [Concomitant]
     Active Substance: FAMOTIDINE
     Indication: PRODUCT USED FOR UNKNOWN INDICATION
     Route: 065
     Dates: start: 20161011, end: 20170222
  20. CITALOPRAM HYDROBROMIDE. [Concomitant]
     Active Substance: CITALOPRAM HYDROBROMIDE
     Indication: ANXIETY
     Route: 065
     Dates: start: 20161011
  21. NYSTATIN. [Concomitant]
     Active Substance: NYSTATIN
     Indication: CANDIDA INFECTION
     Route: 065
     Dates: start: 20161011
  22. CIPROFLOXACIN. [Concomitant]
     Active Substance: CIPROFLOXACIN
     Indication: PRODUCT USED FOR UNKNOWN INDICATION
     Dosage: 1000 MILLIGRAM
     Route: 065
     Dates: start: 20161221, end: 20161225
  23. DIPHENHYDRAMINE HYDROCHLORIDE. [Concomitant]
     Active Substance: DIPHENHYDRAMINE HYDROCHLORIDE
     Indication: PRODUCT USED FOR UNKNOWN INDICATION
     Route: 065
     Dates: start: 20161116, end: 20161130
  24. ZOLEDRONIC ACID [Concomitant]
     Active Substance: ZOLEDRONIC ACID
     Indication: METASTASES TO BONE
     Route: 065
     Dates: start: 20161126, end: 20170130
  25. ABRAXANE [Suspect]
     Active Substance: PACLITAXEL
     Route: 041
  26. MPDL3280A (ATEZOLIZUMAB) [Suspect]
     Active Substance: ATEZOLIZUMAB
     Indication: BREAST CANCER METASTATIC
     Route: 041
     Dates: start: 20161102
  27. ONDANSETRON [Concomitant]
     Active Substance: ONDANSETRON
     Indication: NAUSEA
     Dosage: 4MG
     Route: 065
     Dates: start: 20160913, end: 20170222
  28. LORAZEPAM. [Concomitant]
     Active Substance: LORAZEPAM
     Indication: ANXIETY
     Route: 065
     Dates: start: 20161011
  29. ABRAXANE [Suspect]
     Active Substance: PACLITAXEL
     Indication: BREAST CANCER METASTATIC
     Dosage: 166MG
     Route: 041
     Dates: start: 20161102, end: 20161130
  30. ONDANSETRON [Concomitant]
     Active Substance: ONDANSETRON
     Route: 065
     Dates: start: 20161011
  31. OXYCODONE [Concomitant]
     Active Substance: OXYCODONE
     Indication: PAIN
     Dosage: 156 MILLIGRAM
     Route: 065
     Dates: start: 20160922, end: 20170222
  32. MACROGOL 3350 [Concomitant]
     Active Substance: POLYETHYLENE GLYCOL 3350
     Route: 065
     Dates: start: 20161011
  33. NEUPOGEN [Concomitant]
     Active Substance: FILGRASTIM
     Indication: PRODUCT USED FOR UNKNOWN INDICATION
     Route: 065
     Dates: start: 20161211, end: 20161212
  34. MAGNESIUM CITRATE. [Concomitant]
     Active Substance: MAGNESIUM CITRATE
     Indication: CONSTIPATION
     Route: 065
     Dates: start: 20161123
  35. MORPHINE SULFATE. [Concomitant]
     Active Substance: MORPHINE SULFATE
     Indication: PAIN IN EXTREMITY
     Dosage: 15 MILLIGRAM
     Route: 065
     Dates: start: 20161220, end: 20161225
  36. DOCUSATE SODIUM. [Concomitant]
     Active Substance: DOCUSATE SODIUM
     Indication: CONSTIPATION
     Route: 065
     Dates: start: 20160928, end: 20170222
  37. EVENING PRIMROSE OIL [Concomitant]
     Active Substance: EVENING PRIMROSE OIL
     Route: 065
     Dates: start: 20161011, end: 20170222
  38. NYSTATIN. [Concomitant]
     Active Substance: NYSTATIN
     Route: 065
     Dates: start: 20161025, end: 20170222

REACTIONS (6)
  - Diarrhoea [Recovered/Resolved]
  - Nausea [Not Recovered/Not Resolved]
  - Blood bilirubin increased [Recovered/Resolved]
  - Hypophosphataemia [Recovered/Resolved]
  - Diarrhoea [Recovered/Resolved]
  - Nephrolithiasis [Recovered/Resolved]

NARRATIVE: CASE EVENT DATE: 20161114
